FAERS Safety Report 17204723 (Version 1)
Quarter: 2019Q4

REPORT INFORMATION
  Report Type: Report from Study
  Country: None (occurrence: NL)
  Receive Date: 20191226
  Receipt Date: 20191226
  Transmission Date: 20200122
  Serious: Yes (Other)
  Sender: FDA-Public Use
  Company Number: NL-ABBVIE-17K-114-1964603-00

PATIENT
  Sex: Female

DRUGS (5)
  1. DUODOPA [Suspect]
     Active Substance: CARBIDOPA\LEVODOPA
     Dosage: CD 2.8
     Route: 050
  2. VITAMIN B12 [Concomitant]
     Active Substance: CYANOCOBALAMIN
     Indication: PRODUCT USED FOR UNKNOWN INDICATION
  3. LAXANS [Concomitant]
     Indication: ABNORMAL FAECES
  4. DUODOPA [Suspect]
     Active Substance: CARBIDOPA\LEVODOPA
     Indication: PARKINSON^S DISEASE
     Dosage: MORNING DOSE 4, CONTINUOUS DOSE 4.4, EXTRA DOSE 4, NIGHT DOSE 2.8
     Route: 050
     Dates: start: 20090819
  5. DUODOPA [Suspect]
     Active Substance: CARBIDOPA\LEVODOPA
     Dosage: CD: 4.5, ED: 3.5, CND: 3.2, END: 3.5?24 HOUR ADMINISTRATION
     Route: 050

REACTIONS (29)
  - Fall [Not Recovered/Not Resolved]
  - Hypokinesia [Not Recovered/Not Resolved]
  - Emotional disorder [Not Recovered/Not Resolved]
  - Cognitive disorder [Not Recovered/Not Resolved]
  - Pain in extremity [Not Recovered/Not Resolved]
  - Disturbance in attention [Not Recovered/Not Resolved]
  - Head injury [Not Recovered/Not Resolved]
  - Device kink [Recovered/Resolved]
  - Fall [Unknown]
  - Tension [Not Recovered/Not Resolved]
  - Hand fracture [Not Recovered/Not Resolved]
  - Memory impairment [Not Recovered/Not Resolved]
  - Faecal volume decreased [Not Recovered/Not Resolved]
  - Wrist fracture [Not Recovered/Not Resolved]
  - Abnormal dreams [Recovered/Resolved]
  - Sleep disorder [Not Recovered/Not Resolved]
  - Muscle rigidity [Not Recovered/Not Resolved]
  - Device kink [Unknown]
  - Internal haemorrhage [Not Recovered/Not Resolved]
  - Musculoskeletal stiffness [Not Recovered/Not Resolved]
  - Stress [Not Recovered/Not Resolved]
  - On and off phenomenon [Not Recovered/Not Resolved]
  - Infrequent bowel movements [Not Recovered/Not Resolved]
  - Malaise [Unknown]
  - Device occlusion [Recovered/Resolved]
  - Freezing phenomenon [Not Recovered/Not Resolved]
  - Feeling abnormal [Not Recovered/Not Resolved]
  - Dyskinesia [Recovered/Resolved]
  - Dyskinesia [Recovering/Resolving]
